FAERS Safety Report 8214504-7 (Version None)
Quarter: 2012Q1

REPORT INFORMATION
  Report Type: 
  Country: None (occurrence: None)
  Receive Date: 20120316
  Receipt Date: 20120316
  Transmission Date: 20120608
  Serious: Yes (Other)
  Sender: FDA-Public Use
  Company Number: None

PATIENT
  Age: 62 Year
  Sex: Male
  Weight: 79.832 kg

DRUGS (2)
  1. LEVOFLOXACIN [Suspect]
     Indication: URINARY TRACT INFECTION
     Dosage: 500 MG
     Route: 048
     Dates: start: 20120308, end: 20120311
  2. LEVOFLOXACIN [Suspect]
     Indication: SEPSIS
     Dosage: 500 MG
     Route: 048
     Dates: start: 20120308, end: 20120311

REACTIONS (8)
  - HALLUCINATION [None]
  - VISION BLURRED [None]
  - CONFUSIONAL STATE [None]
  - DIZZINESS [None]
  - ABNORMAL SLEEP-RELATED EVENT [None]
  - TREMOR [None]
  - MENTAL DISORDER [None]
  - ABNORMAL DREAMS [None]
